FAERS Safety Report 16322070 (Version 4)
Quarter: 2019Q3

REPORT INFORMATION
  Report Type: Report from Study
  Country: DE (occurrence: DE)
  Receive Date: 20190516
  Receipt Date: 20190703
  Transmission Date: 20191004
  Serious: Yes (Death, Life-Threatening)
  Sender: FDA-Public Use
  Company Number: DE-CELGENEUS-DEU-20190504782

PATIENT
  Age: 77 Year
  Sex: Female
  Weight: 52 kg

DRUGS (39)
  1. ALLOPURINOL. [Concomitant]
     Active Substance: ALLOPURINOL
     Dosage: 300 MILLIGRAM
     Route: 048
     Dates: start: 20180806, end: 20190423
  2. POSACONAZOLE [Concomitant]
     Active Substance: POSACONAZOLE
     Route: 048
     Dates: start: 20190517, end: 20190517
  3. SODIUM PICOSULFATE [Concomitant]
     Active Substance: SODIUM PICOSULFATE
     Indication: CONSTIPATION
     Dosage: 20 DROPS
     Route: 048
     Dates: start: 20190514, end: 20190514
  4. VENETOCLAX. [Concomitant]
     Active Substance: VENETOCLAX
     Indication: ACUTE MYELOID LEUKAEMIA
     Dosage: 100 MILLIGRAM
     Route: 048
     Dates: start: 20190510
  5. AMPHO MORONAL [Concomitant]
     Active Substance: AMPHOTERICIN B
     Dosage: 20 MILLIGRAM
     Route: 048
     Dates: start: 20190511, end: 20190511
  6. ACICLOVIR [Concomitant]
     Active Substance: ACYCLOVIR
     Route: 061
     Dates: start: 20190510, end: 20190513
  7. AG-221 [Suspect]
     Active Substance: ENASIDENIB
     Indication: ACUTE MYELOID LEUKAEMIA
     Dosage: 50 MILLIGRAM
     Route: 048
     Dates: start: 20180608
  8. AMPHO MORONAL [Concomitant]
     Active Substance: AMPHOTERICIN B
     Dosage: 600 MILLIGRAM
     Route: 048
     Dates: start: 20190513
  9. SODIUM PICOSULFATE [Concomitant]
     Active Substance: SODIUM PICOSULFATE
     Dosage: 20 DROPS
     Route: 048
     Dates: start: 20190518, end: 20190518
  10. ALLOPURINOL. [Concomitant]
     Active Substance: ALLOPURINOL
     Indication: HYPERURICAEMIA
     Dosage: 300 MILLIGRAM
     Route: 048
     Dates: start: 20190424, end: 20190501
  11. ONDANSETRON [Concomitant]
     Active Substance: ONDANSETRON
     Indication: NAUSEA
     Route: 048
     Dates: start: 20190510, end: 20190516
  12. CALCIUM [Concomitant]
     Active Substance: CALCIUM
     Indication: HYPOCALCAEMIA
     Dosage: 1 SACHET
     Route: 048
     Dates: start: 20190510
  13. ACICLOVIR [Concomitant]
     Active Substance: ACYCLOVIR
     Dosage: 2000 MILLIGRAM
     Route: 048
     Dates: start: 20190514
  14. KALIUM [Concomitant]
     Active Substance: POTASSIUM CHLORIDE
     Dosage: 2400 MILLIGRAM
     Route: 048
     Dates: start: 20190519, end: 20190519
  15. KALIUM [Concomitant]
     Active Substance: POTASSIUM CHLORIDE
     Dosage: 3600 MILLIGRAM
     Route: 048
     Dates: start: 20190520
  16. ZOPICLONE [Concomitant]
     Active Substance: ZOPICLONE
     Indication: INSOMNIA
     Route: 048
     Dates: start: 20190522, end: 20190522
  17. MOMETASON [Concomitant]
     Active Substance: MOMETASONE FUROATE
     Indication: RHINITIS ALLERGIC
     Route: 045
     Dates: start: 20190301, end: 20190422
  18. POSACONAZOLE [Concomitant]
     Active Substance: POSACONAZOLE
     Dosage: 800 MILLIGRAM
     Route: 048
     Dates: start: 20190518, end: 20190519
  19. POSACONAZOLE [Concomitant]
     Active Substance: POSACONAZOLE
     Dosage: 400 MILLIGRAM
     Route: 048
     Dates: start: 20190520, end: 20190520
  20. FUROSEMIDE. [Concomitant]
     Active Substance: FUROSEMIDE
     Indication: OEDEMA PERIPHERAL
     Dosage: 80 MILLIGRAM
     Route: 041
     Dates: start: 20190522, end: 20190522
  21. AZACITIDINE. [Suspect]
     Active Substance: AZACITIDINE
     Indication: ACUTE MYELOID LEUKAEMIA
     Dosage: 75 MICROGRAM/SQ. METER
     Route: 058
     Dates: start: 20180608, end: 20180614
  22. POSACONAZOLE [Concomitant]
     Active Substance: POSACONAZOLE
     Indication: FUNGAL INFECTION
     Route: 048
     Dates: start: 20190510, end: 20190510
  23. ACICLOVIR [Concomitant]
     Active Substance: ACYCLOVIR
     Dosage: 2000 MILLIGRAM
     Route: 048
     Dates: start: 20190511, end: 20190513
  24. SODIUM PICOSULFATE [Concomitant]
     Active Substance: SODIUM PICOSULFATE
     Dosage: 15 DROPS
     Route: 048
     Dates: start: 20190519, end: 20190519
  25. MACROGOL [Concomitant]
     Active Substance: POLYETHYLENE GLYCOLS
     Indication: CONSTIPATION
     Dosage: 13.125 GRAM
     Route: 048
     Dates: start: 20190515
  26. FUROSEMIDE. [Concomitant]
     Active Substance: FUROSEMIDE
     Indication: WEIGHT INCREASED
     Route: 041
     Dates: start: 20190521, end: 20190521
  27. AZACITIDINE. [Suspect]
     Active Substance: AZACITIDINE
     Dosage: 75 MICROGRAM/SQ. METER
     Route: 058
     Dates: start: 20190404, end: 20190412
  28. LORATADIN [Concomitant]
     Active Substance: LORATADINE
     Indication: RHINITIS ALLERGIC
     Route: 048
     Dates: start: 20190301, end: 20190422
  29. ONDANSETRON [Concomitant]
     Active Substance: ONDANSETRON
     Route: 048
     Dates: start: 20190522, end: 20190522
  30. AMPHO MORONAL [Concomitant]
     Active Substance: AMPHOTERICIN B
     Dosage: 10 MILLIGRAM
     Route: 048
     Dates: start: 20190512, end: 20190512
  31. POSACONAZOLE [Concomitant]
     Active Substance: POSACONAZOLE
     Dosage: 100 MILLIGRAM
     Route: 048
     Dates: start: 20190511, end: 20190512
  32. ACICLOVIR [Concomitant]
     Active Substance: ACYCLOVIR
     Indication: ORAL HERPES
     Dosage: 800 MILLIGRAM
     Route: 048
     Dates: start: 20190510, end: 20190510
  33. SODIUM PICOSULFATE [Concomitant]
     Active Substance: SODIUM PICOSULFATE
     Dosage: 20 DROPS
     Route: 048
     Dates: start: 20190511, end: 20190511
  34. LACTULOSE. [Concomitant]
     Active Substance: LACTULOSE
     Indication: CONSTIPATION
     Dosage: 15 MILLILITER
     Route: 048
     Dates: start: 20190516, end: 20190516
  35. KALIUM [Concomitant]
     Active Substance: POTASSIUM CHLORIDE
     Indication: HYPOKALAEMIA
     Dosage: 2.984 GRAM
     Route: 048
     Dates: start: 20190517, end: 20190519
  36. PANTOZOL [Concomitant]
     Active Substance: PANTOPRAZOLE SODIUM
     Indication: ULCER
     Dosage: 20 MILLIGRAM
     Route: 048
     Dates: start: 20190510
  37. AMPHO MORONAL [Concomitant]
     Active Substance: AMPHOTERICIN B
     Indication: CANDIDA INFECTION
     Dosage: 3600 MILLIGRAM
     Route: 048
     Dates: start: 20190510, end: 20190510
  38. POSACONAZOLE [Concomitant]
     Active Substance: POSACONAZOLE
     Dosage: 300 MILLIGRAM
     Route: 048
     Dates: start: 20190513, end: 20190517
  39. GLYCEROL [Concomitant]
     Active Substance: GLYCERIN
     Indication: CONSTIPATION
     Route: 054
     Dates: start: 20190517, end: 20190517

REACTIONS (2)
  - Febrile neutropenia [Not Recovered/Not Resolved]
  - Pneumonia fungal [Fatal]

NARRATIVE: CASE EVENT DATE: 20190509
